FAERS Safety Report 12921048 (Version 2)
Quarter: 2016Q4

REPORT INFORMATION
  Report Type: Spontaneous
  Country: US (occurrence: US)
  Receive Date: 20161107
  Receipt Date: 20161115
  Transmission Date: 20170207
  Serious: No
  Sender: FDA-Public Use
  Company Number: US-UNITED THERAPEUTICS-UNT-2016-016922

PATIENT
  Age: 59 Year
  Sex: Female
  Weight: 97.52 kg

DRUGS (2)
  1. LETAIRIS [Suspect]
     Active Substance: AMBRISENTAN
     Indication: PRODUCT USED FOR UNKNOWN INDICATION
     Dosage: 10 MG, QD
     Route: 065
  2. TYVASO [Suspect]
     Active Substance: TREPROSTINIL
     Indication: PULMONARY HYPERTENSION
     Dosage: 18-54 ?G, QID
     Dates: start: 20161021

REACTIONS (15)
  - Eye pain [Unknown]
  - Flatulence [Unknown]
  - Sinus congestion [Unknown]
  - Pain [Unknown]
  - Headache [Unknown]
  - Fluid retention [Unknown]
  - Insomnia [Unknown]
  - Weight increased [Unknown]
  - Paranasal sinus hypersecretion [Unknown]
  - Nasal congestion [Not Recovered/Not Resolved]
  - Depression [Unknown]
  - Vomiting projectile [Unknown]
  - Dizziness [Unknown]
  - Abdominal distension [Unknown]
  - Diarrhoea [Unknown]

NARRATIVE: CASE EVENT DATE: 201610
